FAERS Safety Report 6541143-6 (Version None)
Quarter: 2010Q1

REPORT INFORMATION
  Report Type: 
  Country: None (occurrence: None)
  Receive Date: 20100118
  Receipt Date: 20091201
  Transmission Date: 20100710
  Serious: Yes (Hospitalization)
  Sender: FDA-Public Use
  Company Number: A0748441A

PATIENT
  Age: 74 Year
  Sex: Male
  Weight: 106.8 kg

DRUGS (10)
  1. AVANDIA [Suspect]
     Dosage: 4MG TWICE PER DAY
     Route: 048
     Dates: start: 20050101, end: 20070703
  2. GLIMEPIRIDE [Concomitant]
  3. LIPITOR [Concomitant]
  4. FUROSEMIDE [Concomitant]
  5. METOPROLOL [Concomitant]
  6. BENAZEPRIL HYDROCHLORIDE [Concomitant]
     Dates: end: 20070201
  7. PRILOSEC [Concomitant]
  8. GLUCOPHAGE [Concomitant]
  9. CRESTOR [Concomitant]
  10. LANTUS [Concomitant]

REACTIONS (4)
  - CORONARY ARTERY DISEASE [None]
  - MYOCARDIAL INFARCTION [None]
  - RENAL ARTERY STENOSIS [None]
  - RIGHT VENTRICULAR FAILURE [None]
